FAERS Safety Report 7979895-0 (Version None)
Quarter: 2011Q4

REPORT INFORMATION
  Report Type: 
  Country: None (occurrence: None)
  Receive Date: 20111214
  Receipt Date: 20111208
  Transmission Date: 20120403
  Serious: Yes (Other)
  Sender: FDA-Public Use
  Company Number: US-AMGEN-USASP2011065388

PATIENT
  Age: 58 Year
  Sex: Female

DRUGS (2)
  1. ENBREL [Suspect]
     Indication: RHEUMATOID ARTHRITIS
     Dosage: 50 MG, QWK
     Dates: start: 20101201
  2. ENBREL [Suspect]
     Indication: OSTEOARTHRITIS

REACTIONS (5)
  - INJECTION SITE WARMTH [None]
  - FATIGUE [None]
  - WEIGHT DECREASED [None]
  - INJECTION SITE SWELLING [None]
  - OSTEOARTHRITIS [None]
